FAERS Safety Report 4503734-3 (Version None)
Quarter: 2004Q4

REPORT INFORMATION
  Report Type: 
  Country: None (occurrence: None)
  Receive Date: 20041115
  Receipt Date: 20041101
  Transmission Date: 20050328
  Serious: No
  Sender: FDA-Public Use
  Company Number: A04200400946

PATIENT
  Age: 40 Year
  Sex: Female

DRUGS (1)
  1. FORTRAL    -    (PENTAZOCINE) [Suspect]
     Indication: HEADACHE
     Route: 048
     Dates: start: 20040922, end: 20040922

REACTIONS (6)
  - ANGIONEUROTIC OEDEMA [None]
  - DERMATITIS ALLERGIC [None]
  - FACE OEDEMA [None]
  - LARYNGEAL OEDEMA [None]
  - OEDEMA PERIPHERAL [None]
  - PARVOVIRUS B19 SEROLOGY POSITIVE [None]
